FAERS Safety Report 8924264 (Version 1)
Quarter: 2012Q4

REPORT INFORMATION
  Report Type: 
  Country: VN (occurrence: VN)
  Receive Date: 20121126
  Receipt Date: 20121126
  Transmission Date: 20130627
  Serious: Yes (Death, Hospitalization, Other)
  Sender: FDA-Public Use
  Company Number: VN-BAXTER-2012BAX024870

PATIENT
  Age: 53 Year
  Sex: Male

DRUGS (2)
  1. DIANEAL LOW CALCIUM (2,5MEQ.L) PERITIONEAL DIALYSIS SOLUTION WITH 2.5% [Suspect]
     Indication: CAPD
     Route: 033
     Dates: end: 20121106
  2. DIANEAL LOW CALCIUM W/ DEXTROSE 4.25% [Suspect]
     Indication: CAPD
     Route: 033
     Dates: end: 20121106

REACTIONS (5)
  - Cardiac failure [Fatal]
  - Epilepsy [Fatal]
  - Grand mal convulsion [Not Recovered/Not Resolved]
  - Asthenia [Unknown]
  - Myocardial infarction [None]
